FAERS Safety Report 6468819-3 (Version None)
Quarter: 2009Q4

REPORT INFORMATION
  Report Type: 
  Country: None (occurrence: None)
  Receive Date: 20091203
  Receipt Date: 20080326
  Transmission Date: 20100525
  Serious: Yes (Hospitalization)
  Sender: FDA-Public Use
  Company Number: DE-ELI_LILLY_AND_COMPANY-DE_051017139

PATIENT
  Sex: Female
  Weight: 53 kg

DRUGS (4)
  1. DULOXETINE HYDROCHLORIDE [Suspect]
     Indication: DEPRESSION
     Dosage: 60 MG, UNKNOWN
     Route: 048
     Dates: start: 20051005
  2. L-THYROXIN [Concomitant]
     Indication: HYPOTHYROIDISM
     Dosage: 50 UG, UNKNOWN
     Route: 048
     Dates: start: 19950101
  3. GYNOKADIN [Concomitant]
     Indication: HYSTERECTOMY
     Dosage: UNK, UNKNOWN
     Route: 048
     Dates: start: 20040101
  4. CEDAX [Concomitant]
     Indication: OROPHARYNGEAL PAIN
     Dosage: UNK, 2/D
     Route: 048
     Dates: start: 20051004

REACTIONS (2)
  - SENSATION OF FOREIGN BODY [None]
  - THROAT TIGHTNESS [None]
